FAERS Safety Report 24310563 (Version 1)
Quarter: 2024Q3

REPORT INFORMATION
  Report Type: Spontaneous
  Country: GB (occurrence: GB)
  Receive Date: 20240912
  Receipt Date: 20240912
  Transmission Date: 20241017
  Serious: Yes (Disabling)
  Sender: PERRIGO
  Company Number: None

PATIENT
  Age: 42 Year
  Sex: Female

DRUGS (17)
  1. NIQUITIN [Suspect]
     Active Substance: NICOTINE
     Indication: Adverse drug reaction
     Dosage: 21MG/24HR PATCH TO BE APPLIED DAILY
     Route: 065
     Dates: start: 20240719, end: 20240721
  2. NIQUITIN [Suspect]
     Active Substance: NICOTINE
     Dosage: UNK
     Route: 065
  3. LAMOTRIGINE [Concomitant]
     Active Substance: LAMOTRIGINE
  4. DIAZEPAM [Concomitant]
     Active Substance: DIAZEPAM
  5. DIHYDROCODEINE [Concomitant]
     Active Substance: DIHYDROCODEINE
  6. MORPHINE [Concomitant]
     Active Substance: MORPHINE
  7. FLUOXETINE [Concomitant]
     Active Substance: FLUOXETINE HYDROCHLORIDE
  8. FOLIC ACID [Concomitant]
     Active Substance: FOLIC ACID
  9. MEBEVERINE [Concomitant]
     Active Substance: MEBEVERINE
  10. MESALAMINE [Concomitant]
     Active Substance: MESALAMINE
  11. QUETIAPINE [Concomitant]
     Active Substance: QUETIAPINE
  12. PIZOTYLINE [Concomitant]
     Active Substance: PIZOTYLINE
  13. SUMATRIPTAN [Concomitant]
     Active Substance: SUMATRIPTAN\SUMATRIPTAN SUCCINATE
  14. LACTULOSE [Concomitant]
     Active Substance: LACTULOSE
  15. BECLOMETHASONE\FORMOTEROL [Concomitant]
     Active Substance: BECLOMETHASONE\FORMOTEROL
  16. VENTOLIN [Concomitant]
     Active Substance: ALBUTEROL SULFATE
  17. IPRATROPIUM [Concomitant]
     Active Substance: IPRATROPIUM

REACTIONS (4)
  - Nightmare [Recovered/Resolved]
  - Anxiety [Recovering/Resolving]
  - Pruritus [Recovered/Resolved]
  - Restless legs syndrome [Recovered/Resolved]

NARRATIVE: CASE EVENT DATE: 20240720
